FAERS Safety Report 13745992 (Version 3)
Quarter: 2019Q1

REPORT INFORMATION
  Report Type: Spontaneous
  Country: US (occurrence: US)
  Receive Date: 20170712
  Receipt Date: 20190320
  Transmission Date: 20190417
  Serious: Yes (Other)
  Sender: FDA-Public Use
  Company Number: US-PFIZER INC-2017302120

PATIENT
  Age: 70 Year
  Sex: Female
  Weight: 77.11 kg

DRUGS (7)
  1. PREMPRO [Suspect]
     Active Substance: ESTROGENS, CONJUGATED\MEDROXYPROGESTERONE ACETATE
     Indication: HOT FLUSH
     Dosage: 0.3 MG / 1.5 MG, 1X/DAY
     Route: 048
  2. WELLBUTRIN [Concomitant]
     Active Substance: BUPROPION HYDROCHLORIDE
     Dosage: 300 MG, DAILY
  3. PREMPRO [Suspect]
     Active Substance: ESTROGENS, CONJUGATED\MEDROXYPROGESTERONE ACETATE
     Dosage: UNK, ALTERNATE DAY (TAKE IT EVERY OTHER DAY FOR 2 WEEKS AND THEN STOP ENTIRELY AND BY THEN)
  4. PREMPRO [Suspect]
     Active Substance: ESTROGENS, CONJUGATED\MEDROXYPROGESTERONE ACETATE
     Dosage: SKIP THE MEDICATION ONCE A WEEK
  5. PREMPRO [Suspect]
     Active Substance: ESTROGENS, CONJUGATED\MEDROXYPROGESTERONE ACETATE
     Dosage: 0.3 MG / 1.5 MG, DAILY
     Route: 048
  6. VIIBRYD [Concomitant]
     Active Substance: VILAZODONE HYDROCHLORIDE
     Indication: ANXIETY
     Dosage: 30 MG, DAILY
  7. VIIBRYD [Concomitant]
     Active Substance: VILAZODONE HYDROCHLORIDE
     Indication: DEPRESSION

REACTIONS (7)
  - Sleep disorder [Unknown]
  - Intentional product misuse [Unknown]
  - Fatigue [Unknown]
  - Fall [Unknown]
  - Hip fracture [Unknown]
  - Breast tenderness [Unknown]
  - Malaise [Unknown]
